FAERS Safety Report 21238038 (Version 2)
Quarter: 2022Q3

REPORT INFORMATION
  Report Type: Report from Study
  Country: CL (occurrence: CL)
  Receive Date: 20220822
  Receipt Date: 20220827
  Transmission Date: 20221027
  Serious: Yes (Other)
  Sender: FDA-Public Use
  Company Number: CL-NOVARTISPH-NVSC2022CL159147

PATIENT
  Sex: Female

DRUGS (8)
  1. FULVESTRANT [Suspect]
     Active Substance: FULVESTRANT
     Indication: Breast cancer stage IV
     Dosage: 500 MG, QMO(250 MG)
     Route: 030
     Dates: start: 20220614
  2. FULVESTRANT [Suspect]
     Active Substance: FULVESTRANT
     Dosage: UNK
     Route: 065
     Dates: start: 20220614
  3. PIQRAY [Suspect]
     Active Substance: ALPELISIB
     Indication: Breast cancer stage IV
     Dosage: 200 MG, QD(CYCLE 1)(150 MG AND 50 MG)
     Route: 048
     Dates: start: 20220712
  4. PIQRAY [Suspect]
     Active Substance: ALPELISIB
     Dosage: 150 MG
     Route: 048
  5. PIQRAY [Suspect]
     Active Substance: ALPELISIB
     Dosage: 300 MG, QD
     Route: 048
  6. PIQRAY [Suspect]
     Active Substance: ALPELISIB
     Dosage: 300 MG, QD
     Route: 048
     Dates: start: 20220718
  7. PIQRAY [Suspect]
     Active Substance: ALPELISIB
     Dosage: 300 MG, QD
     Route: 048
  8. PIQRAY [Suspect]
     Active Substance: ALPELISIB
     Dosage: 300 MG, QD
     Route: 048
     Dates: start: 20220712

REACTIONS (10)
  - Diabetes mellitus [Unknown]
  - Ill-defined disorder [Unknown]
  - Anal incontinence [Unknown]
  - Nausea [Unknown]
  - Diarrhoea [Unknown]
  - Hyperglycaemia [Unknown]
  - Bone pain [Not Recovered/Not Resolved]
  - Product use issue [Unknown]
  - Product availability issue [Unknown]
  - Product dose omission issue [Unknown]
